FAERS Safety Report 5018884-5 (Version None)
Quarter: 2006Q2

REPORT INFORMATION
  Report Type: 
  Country: None (occurrence: None)
  Receive Date: 20060531
  Receipt Date: 20060523
  Transmission Date: 20061013
  Serious: Yes (Hospitalization)
  Sender: FDA-Public Use
  Company Number: CIP06001167

PATIENT
  Sex: Male

DRUGS (1)
  1. MACROBID [Suspect]
     Indication: URINARY TRACT INFECTION
     Dosage: 100 MG, ORAL
     Route: 048
     Dates: end: 20060522

REACTIONS (4)
  - DEHYDRATION [None]
  - DIARRHOEA [None]
  - RASH ERYTHEMATOUS [None]
  - RED MAN SYNDROME [None]
